FAERS Safety Report 4406583-X (Version None)
Quarter: 2004Q3

REPORT INFORMATION
  Report Type: 
  Country: None (occurrence: None)
  Receive Date: 20040723
  Receipt Date: 20040608
  Transmission Date: 20050211
  Serious: Yes (Hospitalization)
  Sender: FDA-Public Use
  Company Number: JP-GLAXOSMITHKLINE-B0335235A

PATIENT
  Age: 22 Year
  Sex: Female

DRUGS (1)
  1. PAXIL [Suspect]
     Indication: ANXIETY DISORDER
     Dosage: 20MG PER DAY
     Route: 048
     Dates: start: 20031101, end: 20040606

REACTIONS (5)
  - DEPRESSED LEVEL OF CONSCIOUSNESS [None]
  - MYDRIASIS [None]
  - NAUSEA [None]
  - OVERDOSE [None]
  - SOMNOLENCE [None]
